FAERS Safety Report 4987642-X (Version None)
Quarter: 2006Q2

REPORT INFORMATION
  Report Type: 
  Country: None (occurrence: None)
  Receive Date: 20060426
  Receipt Date: 20060404
  Transmission Date: 20061013
  Serious: Yes (Death, Other)
  Sender: FDA-Public Use
  Company Number: 2006053879

PATIENT
  Age: 81 Year
  Sex: Male

DRUGS (11)
  1. ATARAX [Suspect]
     Indication: ILL-DEFINED DISORDER
     Dosage: 1 DOSAGE FORM (1 D), ORAL
     Route: 048
     Dates: end: 20060309
  2. METOCLOPRAMIDE [Suspect]
     Indication: ILL-DEFINED DISORDER
     Dosage: 30 MG (1 D), ORAL
     Route: 048
     Dates: start: 20060303, end: 20060308
  3. XATRAL                (ALFUZOSIN) [Suspect]
     Indication: ILL-DEFINED DISORDER
     Dosage: 1 DOSAGE FORM (1 D), ORAL
     Route: 048
     Dates: end: 20060309
  4. LOVENOX [Suspect]
     Indication: ILL-DEFINED DISORDER
     Dosage: 40 MG (1 D), SUBCUTANEOUS
     Route: 058
     Dates: end: 20060307
  5. CORDARONE [Suspect]
     Indication: ILL-DEFINED DISORDER
     Dosage: 1 GRAM (1 WK), ORAL
     Route: 048
     Dates: end: 20060309
  6. RAMIPRIL [Suspect]
     Indication: ILL-DEFINED DISORDER
     Dosage: 5 MG (1 D), ORAL
     Route: 048
     Dates: end: 20060309
  7. LYTOS (CLODRONATE DISODIUM) [Concomitant]
  8. DUPHALAC [Concomitant]
  9. LANSOYL (PARAFFIN, LIQUID) [Concomitant]
  10. XANAX [Concomitant]
  11. DURAGESIC-100 [Concomitant]

REACTIONS (2)
  - AGRANULOCYTOSIS [None]
  - SEPTIC SHOCK [None]
